FAERS Safety Report 15320320 (Version 2)
Quarter: 2018Q3

REPORT INFORMATION
  Report Type: Spontaneous
  Country: SG (occurrence: SG)
  Receive Date: 20180827
  Receipt Date: 20180917
  Transmission Date: 20181010
  Serious: Yes (Death)
  Sender: FDA-Public Use
  Company Number: SG-ACTELION-A-CH2018-177950

PATIENT
  Age: 58 Year
  Sex: Male

DRUGS (13)
  1. GRANISETRON [Concomitant]
     Active Substance: GRANISETRON
  2. RANITIDINE. [Concomitant]
     Active Substance: RANITIDINE
  3. SODIUM CHLORIDE. [Concomitant]
     Active Substance: SODIUM CHLORIDE
  4. ONDANSETRON [Concomitant]
     Active Substance: ONDANSETRON
  5. ACETYLCYSTEINE. [Concomitant]
     Active Substance: ACETYLCYSTEINE
  6. MEGESTROL [Concomitant]
     Active Substance: MEGESTROL
  7. FOLIC ACID. [Concomitant]
     Active Substance: FOLIC ACID
     Dosage: 600 MG, UNK
  8. FRUSEMIDE [Concomitant]
     Active Substance: FUROSEMIDE
  9. OPSUMIT [Suspect]
     Active Substance: MACITENTAN
     Indication: PULMONARY ARTERIAL HYPERTENSION
     Dosage: 10 MG, OD
     Route: 048
     Dates: start: 201610, end: 201804
  10. DOCETAXEL. [Concomitant]
     Active Substance: DOCETAXEL
  11. DAKTACORT HC [Concomitant]
  12. PREGABALIN. [Concomitant]
     Active Substance: PREGABALIN
  13. GEMCITABINE [Concomitant]
     Active Substance: GEMCITABINE\GEMCITABINE HYDROCHLORIDE

REACTIONS (1)
  - Sarcoma [Fatal]
